FAERS Safety Report 9937032 (Version 1)
Quarter: 2014Q1

REPORT INFORMATION
  Report Type: Spontaneous
  Country: US (occurrence: None)
  Receive Date: 20140122
  Receipt Date: 20140122
  Transmission Date: 20141002
  Serious: No
  Sender: FDA-Public Use
  Company Number: AP356-00321-SPO-US

PATIENT
  Age: 60 Year
  Sex: Female
  Weight: 74.09 kg

DRUGS (4)
  1. BELVIQ [Suspect]
     Indication: WEIGHT CONTROL
     Route: 048
     Dates: start: 20131203, end: 20131210
  2. BONIVA (IBANDRONATE SODIUM) [Concomitant]
  3. EVAMIST (ESTRADIOL) [Concomitant]
  4. LEXAPRO (ESCITALOPRAM OXALATE) [Concomitant]

REACTIONS (6)
  - Pyrexia [None]
  - Arthralgia [None]
  - Headache [None]
  - Chills [None]
  - Back pain [None]
  - Cognitive disorder [None]
